FAERS Safety Report 18031503 (Version 2)
Quarter: 2020Q3

REPORT INFORMATION
  Report Type: Spontaneous
  Country: US (occurrence: US)
  Receive Date: 20200716
  Receipt Date: 20200716
  Transmission Date: 20201103
  Serious: No
  Sender: FDA-Public Use
  Company Number: US-PFIZER INC-2020269895

PATIENT
  Age: 41 Year
  Sex: Male
  Weight: 90.72 kg

DRUGS (4)
  1. LAMICTAL [Interacting]
     Active Substance: LAMOTRIGINE
     Dosage: UNK
  2. INVEGA [Interacting]
     Active Substance: PALIPERIDONE
     Dosage: UNK
  3. GABAPENTIN. [Interacting]
     Active Substance: GABAPENTIN
     Indication: ANXIETY DISORDER
     Dosage: 600 MG, 2X/DAY (2 OF THE 300MG CAPSULES TWICE A DAY)
  4. GABAPENTIN. [Suspect]
     Active Substance: GABAPENTIN
     Indication: ABDOMINAL PAIN UPPER
     Dosage: 600 MG, 3X/DAY [TWO 300 MG CAPSULES 3 TIMES A DAY]

REACTIONS (4)
  - Gender dysphoria [Unknown]
  - Off label use [Unknown]
  - Drug ineffective for unapproved indication [Unknown]
  - Drug interaction [Unknown]
